FAERS Safety Report 21441140 (Version 2)
Quarter: 2022Q4

REPORT INFORMATION
  Report Type: Report from Study
  Country: CA (occurrence: CA)
  Receive Date: 20221011
  Receipt Date: 20221108
  Transmission Date: 20230113
  Serious: Yes (Other)
  Sender: FDA-Public Use
  Company Number: CA-NOVARTISPH-NVSC2022CA227493

PATIENT
  Sex: Female
  Weight: 65.9 kg

DRUGS (4)
  1. HYRIMOZ [Suspect]
     Active Substance: ADALIMUMAB-ADAZ
     Indication: Crohn^s disease
     Dosage: 40 MG, BIW
     Route: 058
     Dates: start: 20210621
  2. HYRIMOZ [Suspect]
     Active Substance: ADALIMUMAB-ADAZ
     Dosage: 40 MG
     Route: 058
     Dates: start: 20210623
  3. HYRIMOZ [Suspect]
     Active Substance: ADALIMUMAB-ADAZ
     Dosage: UNK, BIW (INJECTIONS DONE EVERY OTHER WEDNESDAY)
     Route: 065
     Dates: start: 20220928
  4. VITAMIN D [Concomitant]
     Active Substance: VITAMIN D NOS
     Indication: Product used for unknown indication
     Route: 065

REACTIONS (24)
  - Pyoderma gangrenosum [Unknown]
  - Uveitis [Unknown]
  - Abdominal discomfort [Unknown]
  - Solar lentigo [Unknown]
  - Diarrhoea [Unknown]
  - Eye pain [Unknown]
  - Crying [Unknown]
  - Scab [Unknown]
  - Rhinalgia [Recovered/Resolved]
  - Wound [Unknown]
  - Flatulence [Unknown]
  - Arthralgia [Unknown]
  - Dry mouth [Unknown]
  - Erythema nodosum [Unknown]
  - Aphthous ulcer [Unknown]
  - Anal fissure [Unknown]
  - Erythema [Unknown]
  - Fistula [Unknown]
  - Rash [Unknown]
  - Abdominal pain lower [Unknown]
  - Abscess [Unknown]
  - Ear infection [Unknown]
  - Sinusitis [Unknown]
  - Inflammation [Unknown]
